FAERS Safety Report 10681914 (Version 1)
Quarter: 2014Q4

REPORT INFORMATION
  Report Type: Spontaneous
  Country: US (occurrence: None)
  Receive Date: 20141229
  Receipt Date: 20141229
  Transmission Date: 20150529
  Serious: No
  Sender: FDA-Public Use
  Company Number: None

PATIENT
  Age: 34 Year
  Weight: 74.84 kg

DRUGS (1)
  1. OXYCODONE [Suspect]
     Active Substance: OXYCODONE
     Indication: BACK DISORDER
     Dosage: 4 PILLS DAILY

REACTIONS (5)
  - Emotional disorder [None]
  - Verbal abuse [None]
  - Lower limb fracture [None]
  - Legal problem [None]
  - Mental disorder [None]

NARRATIVE: CASE EVENT DATE: 20141223
